FAERS Safety Report 19159284 (Version 1)
Quarter: 2021Q2

REPORT INFORMATION
  Report Type: Spontaneous
  Country: US (occurrence: US)
  Receive Date: 20210420
  Receipt Date: 20210420
  Transmission Date: 20210717
  Serious: No
  Sender: FDA-Public Use
  Company Number: US-PFIZER INC-2021392258

PATIENT
  Age: 78 Year
  Sex: Female
  Weight: 63.5 kg

DRUGS (1)
  1. HYDROCORTISONE. [Suspect]
     Active Substance: HYDROCORTISONE
     Indication: PAIN
     Dosage: 2.5 MG

REACTIONS (1)
  - Drug ineffective [Unknown]
